FAERS Safety Report 7544279-6 (Version None)
Quarter: 2011Q2

REPORT INFORMATION
  Report Type: 
  Country: None (occurrence: None)
  Receive Date: 20110613
  Receipt Date: 20071010
  Transmission Date: 20111010
  Serious: Yes (Death, Hospitalization, Other)
  Sender: FDA-Public Use
  Company Number: PHMT2007CA01444

PATIENT
  Sex: Male

DRUGS (1)
  1. SANDOSTATIN LAR [Suspect]
     Indication: ACROMEGALY
     Dosage: 40 MG EVERY MONTH
     Route: 030
     Dates: start: 20051201, end: 20070917

REACTIONS (2)
  - DEATH [None]
  - CARDIAC FAILURE CONGESTIVE [None]
